FAERS Safety Report 25670873 (Version 1)
Quarter: 2025Q3

REPORT INFORMATION
  Report Type: Report from Study
  Country: US (occurrence: US)
  Receive Date: 20250812
  Receipt Date: 20250812
  Transmission Date: 20251021
  Serious: Yes (Hospitalization)
  Sender: Unknown Manufacturer
  Company Number: US-OTTER-US-2025AST000346

PATIENT
  Age: 78 Year
  Sex: Female

DRUGS (2)
  1. OTREXUP [Suspect]
     Active Substance: METHOTREXATE
     Indication: Rheumatoid arthritis
     Dosage: UNK, WEEKLY
     Route: 058
     Dates: start: 201702
  2. RASUVO [Concomitant]
     Active Substance: METHOTREXATE SODIUM
     Indication: Product used for unknown indication
     Route: 065

REACTIONS (1)
  - Bite [Unknown]
